FAERS Safety Report 19500607 (Version 1)
Quarter: 2021Q3

REPORT INFORMATION
  Report Type: Report from Study
  Country: None (occurrence: DE)
  Receive Date: 20210706
  Receipt Date: 20210706
  Transmission Date: 20211014
  Serious: Yes (Life-Threatening, Other)
  Sender: FDA-Public Use
  Company Number: DE-ABBVIE-21K-062-3953310-00

PATIENT
  Age: 65 Year
  Sex: Male
  Weight: 75 kg

DRUGS (6)
  1. VERAPAMIL [Concomitant]
     Active Substance: VERAPAMIL HYDROCHLORIDE
     Indication: PRODUCT USED FOR UNKNOWN INDICATION
     Route: 048
  2. HUMIRA [Suspect]
     Active Substance: ADALIMUMAB
     Indication: PSORIASIS
     Route: 058
     Dates: start: 201008, end: 20150915
  3. ATORVASTATIN [Concomitant]
     Active Substance: ATORVASTATIN
     Indication: PRODUCT USED FOR UNKNOWN INDICATION
     Dosage: 40 MG; 0.5 UNKNOWN UNIT
     Route: 048
  4. DEKRISTOL [Concomitant]
     Active Substance: CHOLECALCIFEROL
     Indication: PRODUCT USED FOR UNKNOWN INDICATION
  5. ALENDRONIC ACID [Concomitant]
     Active Substance: ALENDRONIC ACID
     Indication: PRODUCT USED FOR UNKNOWN INDICATION
  6. DIGITOXIN [Concomitant]
     Active Substance: DIGITOXIN
     Indication: PRODUCT USED FOR UNKNOWN INDICATION
     Route: 048

REACTIONS (20)
  - Atrial fibrillation [Unknown]
  - Cardiomegaly [Unknown]
  - Hyperlipidaemia [Unknown]
  - Oedematous pancreatitis [Unknown]
  - Weight decreased [Unknown]
  - Bile duct stone [Unknown]
  - Aortic arteriosclerosis [Unknown]
  - Cholelithiasis [Unknown]
  - Night sweats [Unknown]
  - Heart sounds abnormal [Unknown]
  - Colon cancer [Recovered/Resolved]
  - Breath sounds abnormal [Unknown]
  - Metastases to lymph nodes [Unknown]
  - Osteoporosis [Unknown]
  - Fibroma [Unknown]
  - Hypertension [Unknown]
  - Ocular icterus [Unknown]
  - Mitral valve incompetence [Unknown]
  - Rib fracture [Unknown]
  - Lymphadenopathy [Unknown]

NARRATIVE: CASE EVENT DATE: 20150915
